FAERS Safety Report 9749310 (Version 1)
Quarter: 2013Q4

REPORT INFORMATION
  Report Type: Spontaneous
  Country: US (occurrence: US)
  Receive Date: 20131212
  Receipt Date: 20131212
  Transmission Date: 20140711
  Serious: No
  Sender: FDA-Public Use
  Company Number: US-INCYTE CORPORATION-2013IN002582

PATIENT
  Sex: Male

DRUGS (9)
  1. JAKAFI [Suspect]
     Indication: MYELOFIBROSIS
     Dosage: 20 MG, BID
     Route: 048
     Dates: start: 20120806
  2. ALLOPURINOL [Concomitant]
  3. AMLODIPINE [Concomitant]
  4. AVODART [Concomitant]
  5. HYDROXYUREA [Concomitant]
  6. LOSARTAN [Concomitant]
  7. POTASSIUM [Concomitant]
  8. METOPROLOL [Concomitant]
  9. TAMSULOSIN [Concomitant]

REACTIONS (2)
  - White blood cell count increased [Unknown]
  - Splenomegaly [Unknown]
